FAERS Safety Report 16636894 (Version 2)
Quarter: 2019Q3

REPORT INFORMATION
  Report Type: Spontaneous
  Country: BR (occurrence: BR)
  Receive Date: 20190726
  Receipt Date: 20190802
  Transmission Date: 20191004
  Serious: No
  Sender: FDA-Public Use
  Company Number: BR-SA-2019SA197408

PATIENT

DRUGS (1)
  1. ALLEGRA [Suspect]
     Active Substance: FEXOFENADINE HYDROCHLORIDE
     Indication: INFLUENZA LIKE ILLNESS
     Dosage: UNK

REACTIONS (2)
  - Somnolence [Unknown]
  - Drug ineffective [Unknown]
